FAERS Safety Report 6736505-8 (Version None)
Quarter: 2010Q2

REPORT INFORMATION
  Report Type: 
  Country: None (occurrence: None)
  Receive Date: 20100521
  Receipt Date: 20100512
  Transmission Date: 20101027
  Serious: Yes (Other)
  Sender: FDA-Public Use
  Company Number: ES-BRISTOL-MYERS SQUIBB COMPANY-15112014

PATIENT
  Age: 72 Year
  Sex: Male

DRUGS (6)
  1. CARBIDOPA + LEVODOPA [Suspect]
     Indication: PARKINSON'S DISEASE
     Dosage: 1DF=12-50MG(10OCT09-22OCT;23OCT-06NOV(TID)50-200MG07NOV-20NOV,25-100MG(TID)21NOV-04DEC,05DE-11JAN10
     Route: 048
     Dates: start: 20091010
  2. MIRAPEX [Suspect]
     Dates: start: 20090225
  3. MAGNESIUM [Concomitant]
     Dates: start: 20091230
  4. PYGEUM [Concomitant]
     Dates: start: 20091230
  5. SAW PALMETTO [Concomitant]
     Dates: start: 20091230
  6. ZINC [Concomitant]
     Dates: start: 20091230

REACTIONS (2)
  - PROSTATE CANCER RECURRENT [None]
  - PROSTATIC SPECIFIC ANTIGEN INCREASED [None]
